FAERS Safety Report 20150821 (Version 3)
Quarter: 2022Q1

REPORT INFORMATION
  Report Type: Report from Study
  Country: JP (occurrence: JP)
  Receive Date: 20211206
  Receipt Date: 20220214
  Transmission Date: 20220423
  Serious: Yes (Death, Hospitalization, Other)
  Sender: FDA-Public Use
  Company Number: JP-NOVARTISPH-NVSJ2021JP019885

PATIENT
  Age: 86 Year
  Sex: Male

DRUGS (2)
  1. TABRECTA [Suspect]
     Active Substance: CAPMATINIB
     Indication: Non-small cell lung cancer stage IIIA
     Dosage: 800 MG
     Route: 048
     Dates: start: 20210329, end: 20210602
  2. TABRECTA [Suspect]
     Active Substance: CAPMATINIB
     Dosage: 400 MG
     Route: 048
     Dates: start: 20210603, end: 20210617

REACTIONS (9)
  - Non-small cell lung cancer stage IIIA [Fatal]
  - Malignant neoplasm progression [Fatal]
  - Fluid retention [Not Recovered/Not Resolved]
  - Oedema peripheral [Not Recovered/Not Resolved]
  - Renal impairment [Not Recovered/Not Resolved]
  - Tumour haemorrhage [Unknown]
  - Respiratory failure [Unknown]
  - Atelectasis [Unknown]
  - Oxygen saturation decreased [Unknown]

NARRATIVE: CASE EVENT DATE: 20210417
